FAERS Safety Report 8137319-7 (Version None)
Quarter: 2012Q1

REPORT INFORMATION
  Report Type: 
  Country: None (occurrence: None)
  Receive Date: 20120103
  Receipt Date: 20110911
  Transmission Date: 20120608
  Serious: No
  Sender: FDA-Public Use
  Company Number: AE-2011-001483

PATIENT
  Age: 57 Year
  Sex: Female
  Weight: 127.0072 kg

DRUGS (9)
  1. RIBAVIRIN [Concomitant]
  2. BACTRIM DS [Concomitant]
  3. PANTOPRAZOLE [Concomitant]
  4. INCIVEK [Suspect]
     Dosage: (3 IN 1 D), ORAL
     Route: 048
     Dates: start: 20110903
  5. LISINOPRIL [Concomitant]
  6. PLAVIX [Concomitant]
  7. TRAMADOL HCL [Concomitant]
  8. PROPRANOLOL [Concomitant]
  9. PEGINTERFERON (PEGINTERFERON ALFA-2A) [Concomitant]

REACTIONS (2)
  - NAUSEA [None]
  - VOMITING [None]
